FAERS Safety Report 17263637 (Version 1)
Quarter: 2020Q1

REPORT INFORMATION
  Report Type: Spontaneous
  Country: US (occurrence: US)
  Receive Date: 20200113
  Receipt Date: 20200113
  Transmission Date: 20200409
  Serious: Yes (Other)
  Sender: FDA-Public Use
  Company Number: US-ASTRAZENECA-2020SE04443

PATIENT
  Sex: Female
  Weight: 68 kg

DRUGS (2)
  1. FASLODEX [Suspect]
     Active Substance: FULVESTRANT
     Route: 030
  2. IBRANCE [Suspect]
     Active Substance: PALBOCICLIB
     Indication: BREAST CANCER FEMALE
     Dosage: 75MG PILL BY MOUTH DAILY
     Route: 048
     Dates: start: 2016, end: 201911

REACTIONS (7)
  - Visual impairment [Unknown]
  - Adverse drug reaction [Unknown]
  - Drug ineffective [Unknown]
  - Pneumonitis [Unknown]
  - Tooth disorder [Unknown]
  - Intentional product misuse [Unknown]
  - Cough [Unknown]
